FAERS Safety Report 6417312-2 (Version None)
Quarter: 2009Q4

REPORT INFORMATION
  Report Type: 
  Country: None (occurrence: None)
  Receive Date: 20091028
  Receipt Date: 20091020
  Transmission Date: 20100525
  Serious: Yes (Hospitalization)
  Sender: FDA-Public Use
  Company Number: PHHO2009CH12928

PATIENT
  Sex: Female

DRUGS (4)
  1. MYFORTIC [Suspect]
     Indication: RENAL TRANSPLANT
     Dosage: UNKNOWN
     Route: 048
     Dates: start: 20090222
  2. SANDIMMUNE [Suspect]
     Indication: RENAL TRANSPLANT
     Dosage: UNKNOWN
     Route: 048
     Dates: start: 20090222
  3. NO TREATMENT RECEIVED NOMED [Suspect]
     Indication: RENAL TRANSPLANT
  4. STEROIDS NOS [Suspect]

REACTIONS (3)
  - CONCOMITANT DISEASE PROGRESSION [None]
  - DRUG INEFFECTIVE [None]
  - URINARY TRACT INFECTION [None]
